FAERS Safety Report 25448431 (Version 1)
Quarter: 2025Q2

REPORT INFORMATION
  Report Type: Report from Study
  Country: US (occurrence: US)
  Receive Date: 20250618
  Receipt Date: 20250618
  Transmission Date: 20250717
  Serious: Yes (Other)
  Sender: ABBVIE
  Company Number: US-ABBVIE-4324619

PATIENT
  Age: 64 Year
  Sex: Male

DRUGS (5)
  1. RINVOQ [Suspect]
     Active Substance: UPADACITINIB
     Indication: Colitis ulcerative
     Dosage: LAST ADMIN DATE 2023?FORM STRENGTH: 45 MILLIGRAM
     Route: 048
     Dates: start: 20230117
  2. RINVOQ [Suspect]
     Active Substance: UPADACITINIB
     Indication: Colitis ulcerative
     Route: 048
  3. RINVOQ [Suspect]
     Active Substance: UPADACITINIB
     Indication: Colitis ulcerative
     Dosage: FORM STRENGTH- 15 MILLIGRAM?LAST ADMIN DATE 2023
     Route: 048
     Dates: start: 20230315
  4. RINVOQ [Suspect]
     Active Substance: UPADACITINIB
     Indication: Colitis ulcerative
     Dosage: FORM STRENGTH: 30MG
     Route: 048
     Dates: start: 202306
  5. RINVOQ [Suspect]
     Active Substance: UPADACITINIB
     Indication: Colitis ulcerative
     Dosage: FORM STRENGTH: 30 MG
     Route: 048

REACTIONS (12)
  - Osteoarthritis [Unknown]
  - Mucous stools [Unknown]
  - Insomnia [Unknown]
  - Abdominal distension [Unknown]
  - Defaecation urgency [Unknown]
  - Frequent bowel movements [Recovered/Resolved]
  - Condition aggravated [Unknown]
  - Frequent bowel movements [Recovering/Resolving]
  - Frequent bowel movements [Recovered/Resolved]
  - Frequent bowel movements [Recovered/Resolved]
  - Loss of personal independence in daily activities [Unknown]
  - Abdominal pain [Unknown]

NARRATIVE: CASE EVENT DATE: 20230101
